FAERS Safety Report 19452617 (Version 1)
Quarter: 2021Q2

REPORT INFORMATION
  Report Type: Spontaneous
  Country: US (occurrence: US)
  Receive Date: 20210623
  Receipt Date: 20210623
  Transmission Date: 20210717
  Serious: Yes (Death)
  Sender: FDA-Public Use
  Company Number: None

PATIENT
  Age: 73 Year
  Sex: Female

DRUGS (25)
  1. DIAZEPAM GEL [Concomitant]
     Active Substance: DIAZEPAM
  2. CARVEDILOL. [Concomitant]
     Active Substance: CARVEDILOL
  3. DOK [Concomitant]
     Active Substance: DOCUSATE SODIUM
  4. MORPHINE SUL [Concomitant]
     Active Substance: MORPHINE SULFATE
  5. NEUPOGEN [Suspect]
     Active Substance: FILGRASTIM
     Indication: BREAST CANCER FEMALE
     Dates: start: 20201212, end: 20210615
  6. ASPIRIN. [Concomitant]
     Active Substance: ASPIRIN
  7. METOCLOPRAM [Concomitant]
     Active Substance: METOCLOPRAMIDE
  8. VITAMIN D3 [Concomitant]
     Active Substance: CHOLECALCIFEROL
  9. ZOFRAN [Concomitant]
     Active Substance: ONDANSETRON HYDROCHLORIDE
  10. NYSTATIN. [Concomitant]
     Active Substance: NYSTATIN
  11. VALTREX [Concomitant]
     Active Substance: VALACYCLOVIR HYDROCHLORIDE
  12. AROMASIN [Concomitant]
     Active Substance: EXEMESTANE
  13. FLUCONAZOLE. [Concomitant]
     Active Substance: FLUCONAZOLE
  14. PANTOPRAZOLE [Concomitant]
     Active Substance: PANTOPRAZOLE
  15. AFINITOR [Concomitant]
     Active Substance: EVEROLIMUS
  16. ATORVASTATIN [Concomitant]
     Active Substance: ATORVASTATIN
  17. NORMAL SALIN [Concomitant]
  18. OLANZAPINE. [Concomitant]
     Active Substance: OLANZAPINE
  19. DECADRON [Concomitant]
     Active Substance: DEXAMETHASONE
  20. DIPHENHYDRAM [Concomitant]
  21. DRONABINOL. [Concomitant]
     Active Substance: DRONABINOL
  22. NEXIUM [Concomitant]
     Active Substance: ESOMEPRAZOLE MAGNESIUM
  23. ONDANSETRON [Concomitant]
     Active Substance: ONDANSETRON
  24. ELIQUIS [Concomitant]
     Active Substance: APIXABAN
  25. NARCAN [Concomitant]
     Active Substance: NALOXONE HYDROCHLORIDE

REACTIONS (1)
  - Death [None]

NARRATIVE: CASE EVENT DATE: 20210615
